FAERS Safety Report 7952533-9 (Version None)
Quarter: 2011Q4

REPORT INFORMATION
  Report Type: 
  Country: None (occurrence: None)
  Receive Date: 20111201
  Receipt Date: 20111129
  Transmission Date: 20120403
  Serious: Yes (Other)
  Sender: FDA-Public Use
  Company Number: GXKR2011DE003215

PATIENT
  Sex: Male

DRUGS (1)
  1. AZITHROMYCIN [Suspect]
     Indication: PHARYNGITIS
     Dosage: 200 MG, QD
     Route: 048
     Dates: start: 20111031, end: 20111102

REACTIONS (5)
  - CONVERSION DISORDER [None]
  - SLEEP DISORDER [None]
  - SCHIZOPHRENIA [None]
  - RESTLESSNESS [None]
  - AGGRESSION [None]
